FAERS Safety Report 23836325 (Version 1)
Quarter: 2024Q2

REPORT INFORMATION
  Report Type: Spontaneous
  Country: GB (occurrence: GB)
  Receive Date: 20240509
  Receipt Date: 20240509
  Transmission Date: 20240715
  Serious: Yes (Other)
  Sender: FDA-Public Use
  Company Number: GB-PFIZER INC-PV202400059769

PATIENT
  Sex: Female

DRUGS (9)
  1. PAMIDRONATE DISODIUM [Suspect]
     Active Substance: PAMIDRONATE DISODIUM
     Indication: Osteolysis
     Dosage: APPROXIMATELY 37 MG, MONTHLY (FOR 20 MONTHS)
     Route: 042
  2. CALCITONIN [Concomitant]
     Active Substance: CALCITONIN
     Indication: Osteolysis
     Dosage: 200 IU INTRANASALLY
     Route: 045
  3. CALCITONIN [Concomitant]
     Active Substance: CALCITONIN
     Dosage: 50 IU/ 3X WEEK, SUBCUTANEOUS INJECTIONS
     Route: 058
  4. ZOLEDRONIC ACID [Concomitant]
     Active Substance: ZOLEDRONIC ACID
     Indication: Osteolysis
     Dosage: 0.012 MG/KG, EVERY 6 MONTHS, FOUR DOSES IN TOTAL
     Route: 042
  5. ZOLEDRONIC ACID [Concomitant]
     Active Substance: ZOLEDRONIC ACID
     Dosage: 0.025 MG/KG, EVERY 6 MONTHS, FOUR DOSES IN TOTAL
     Route: 042
  6. DENOSUMAB [Concomitant]
     Active Substance: DENOSUMAB
     Indication: Osteolysis
     Dosage: 40 MG, INJECTIONS 6-MONTHLY (FOUR DOSES)
     Dates: start: 2011
  7. DENOSUMAB [Concomitant]
     Active Substance: DENOSUMAB
     Dosage: 60 MG, 2-MONTHLY
     Dates: start: 201307, end: 201311
  8. DENOSUMAB [Concomitant]
     Active Substance: DENOSUMAB
     Dosage: DOSE INCREASED TO MONTHLY INJECTIONS
     Dates: start: 201401, end: 201406
  9. TERIPARATIDE [Concomitant]
     Active Substance: TERIPARATIDE
     Indication: Atypical femur fracture
     Dosage: UNK, 18 MONTHS

REACTIONS (2)
  - Osteopetrosis [Unknown]
  - Off label use [Unknown]
